FAERS Safety Report 6580338-2 (Version None)
Quarter: 2010Q1

REPORT INFORMATION
  Report Type: 
  Country: None (occurrence: None)
  Receive Date: 20100212
  Receipt Date: 20100115
  Transmission Date: 20100710
  Serious: No
  Sender: FDA-Public Use
  Company Number: US-ALLERGAN-1000548US

PATIENT
  Age: 80 Year
  Sex: Male

DRUGS (3)
  1. COMBIGAN [Suspect]
     Indication: GLAUCOMA
     Dosage: 1 GTT, BID
     Route: 047
     Dates: start: 20090101
  2. XALATAN [Concomitant]
     Dosage: 1 GTT, QHS
     Route: 047
  3. PLAVIX [Concomitant]

REACTIONS (2)
  - INCOHERENT [None]
  - MEMORY IMPAIRMENT [None]
